FAERS Safety Report 8866175 (Version 2)
Quarter: 2012Q4

REPORT INFORMATION
  Report Type: 
  Country: US (occurrence: US)
  Receive Date: 20121025
  Receipt Date: 20121102
  Transmission Date: 20130627
  Serious: Yes (Other)
  Sender: FDA-Public Use
  Company Number: US-TEVA-365988USA

PATIENT
  Age: 46 Year
  Sex: Male

DRUGS (1)
  1. COPAXONE [Suspect]
     Indication: MULTIPLE SCLEROSIS
     Route: 058
     Dates: start: 20120725

REACTIONS (2)
  - Multiple sclerosis relapse [Recovering/Resolving]
  - Hypoaesthesia [Recovering/Resolving]
